FAERS Safety Report 4736446-1 (Version None)
Quarter: 2005Q3

REPORT INFORMATION
  Report Type: 
  Country: None (occurrence: None)
  Receive Date: 20050808
  Receipt Date: 20050727
  Transmission Date: 20060218
  Serious: Yes (Hospitalization, Other)
  Sender: FDA-Public Use
  Company Number: US-BRISTOL-MYERS SQUIBB COMPANY-13052907

PATIENT
  Age: 61 Year
  Sex: Female
  Weight: 75 kg

DRUGS (14)
  1. COUMADIN [Suspect]
     Indication: TRANSIENT ISCHAEMIC ATTACK
  2. COUMADIN [Suspect]
     Indication: ATRIAL FIBRILLATION
  3. MESTINON [Concomitant]
  4. NORVASC [Concomitant]
     Dates: start: 20050701
  5. ZETIA [Concomitant]
  6. ZETIA [Concomitant]
  7. DIGOXIN [Concomitant]
  8. TAMBOCOR [Concomitant]
  9. PAXIL [Concomitant]
  10. NITROGLYCERIN [Concomitant]
  11. PLAVIX [Concomitant]
     Indication: TRANSIENT ISCHAEMIC ATTACK
     Dates: start: 20030101
  12. PLAVIX [Concomitant]
     Indication: ATRIAL FIBRILLATION
     Dates: start: 20030101
  13. AGGRENOX [Concomitant]
     Indication: TRANSIENT ISCHAEMIC ATTACK
  14. AGGRENOX [Concomitant]
     Indication: ATRIAL FIBRILLATION

REACTIONS (5)
  - ATRIAL FIBRILLATION [None]
  - DYSPNOEA [None]
  - INTERNATIONAL NORMALISED RATIO FLUCTUATION [None]
  - TRANSIENT ISCHAEMIC ATTACK [None]
  - VERTIGO [None]
